FAERS Safety Report 8472816-6 (Version None)
Quarter: 2012Q2

REPORT INFORMATION
  Report Type: 
  Country: None (occurrence: None)
  Receive Date: 20120627
  Receipt Date: 20120622
  Transmission Date: 20120825
  Serious: No
  Sender: FDA-Public Use
  Company Number: US-PFIZER INC-2012063259

PATIENT
  Sex: Male

DRUGS (4)
  1. BUSPAR [Concomitant]
     Dosage: UNK
  2. METOPROLOL [Concomitant]
     Dosage: UNK
  3. STRATTERA [Concomitant]
     Dosage: UNK
  4. VISTARIL [Suspect]
     Dosage: 25 MG, 3X/DAY (TID)

REACTIONS (1)
  - CARDIAC DISORDER [None]
